FAERS Safety Report 5879497-6 (Version None)
Quarter: 2008Q3

REPORT INFORMATION
  Report Type: 
  Country: None (occurrence: None)
  Receive Date: 20080911
  Receipt Date: 20080911
  Transmission Date: 20090109
  Serious: Yes (Life-Threatening, Hospitalization, Other)
  Sender: FDA-Public Use
  Company Number: None

PATIENT
  Age: 49 Year
  Sex: Female
  Weight: 102.5129 kg

DRUGS (1)
  1. FACTIVE [Suspect]
     Indication: BRONCHITIS
     Dosage: 320 MG 1 X DAILY PO
     Route: 048
     Dates: start: 20080129, end: 20080204

REACTIONS (10)
  - ANAPHYLACTIC SHOCK [None]
  - DIARRHOEA [None]
  - HYPERGLYCAEMIA [None]
  - HYPERPARATHYROIDISM [None]
  - HYPOCALCAEMIA [None]
  - MUSCLE RUPTURE [None]
  - PROCTITIS [None]
  - RASH GENERALISED [None]
  - RECTAL FISSURE [None]
  - VITAMIN D DEFICIENCY [None]
